FAERS Safety Report 7867624-0 (Version None)
Quarter: 2011Q4

REPORT INFORMATION
  Report Type: 
  Country: None (occurrence: None)
  Receive Date: 20111028
  Receipt Date: 20111025
  Transmission Date: 20120403
  Serious: Yes (Life-Threatening)
  Sender: FDA-Public Use
  Company Number: PHHY2011RU94686

PATIENT
  Age: 64 Year
  Sex: Female

DRUGS (4)
  1. EGILOK [Concomitant]
  2. VOLTAREN [Suspect]
     Route: 030
  3. AMLODIPINE [Concomitant]
  4. ALLOPURINOL [Concomitant]

REACTIONS (4)
  - ABDOMINAL PAIN UPPER [None]
  - NAUSEA [None]
  - VOMITING [None]
  - FAECES DISCOLOURED [None]
